FAERS Safety Report 16843349 (Version 2)
Quarter: 2020Q1

REPORT INFORMATION
  Report Type: Spontaneous
  Country: MX (occurrence: MX)
  Receive Date: 20190924
  Receipt Date: 20200228
  Transmission Date: 20200409
  Serious: Yes (Death, Hospitalization, Other)
  Sender: FDA-Public Use
  Company Number: PHHY2019MX220223

PATIENT
  Sex: Male

DRUGS (1)
  1. GLIVEC [Suspect]
     Active Substance: IMATINIB MESYLATE
     Indication: CHRONIC MYELOID LEUKAEMIA
     Dosage: 400 MG, UNKNOWN (4X100MG TABLETS)
     Route: 065

REACTIONS (4)
  - Thirst [Unknown]
  - Haemoglobin decreased [Unknown]
  - Death [Fatal]
  - White blood cell count abnormal [Unknown]
